FAERS Safety Report 24453486 (Version 2)
Quarter: 2024Q4

REPORT INFORMATION
  Report Type: Report from Study
  Country: ZA (occurrence: ZA)
  Receive Date: 20241017
  Receipt Date: 20241018
  Transmission Date: 20250114
  Serious: No
  Sender: ROCHE
  Company Number: ZA-ROCHE-3186189

PATIENT
  Age: 59 Year
  Sex: Female

DRUGS (6)
  1. RITUXIMAB [Suspect]
     Active Substance: RITUXIMAB
     Indication: Rheumatoid arthritis
     Route: 041
     Dates: start: 20220303
  2. ACTEMRA [Suspect]
     Active Substance: TOCILIZUMAB
     Indication: Meningioma
     Route: 065
     Dates: end: 202011
  3. ACTEMRA [Suspect]
     Active Substance: TOCILIZUMAB
     Indication: Systemic lupus erythematosus
  4. MABTHERA [Suspect]
     Active Substance: RITUXIMAB
     Indication: Product used for unknown indication
     Dosage: 1ST DOSE GIVEN 01-DEC-2020
     Route: 065
     Dates: start: 20201201
  5. METHOTREXATE [Concomitant]
     Active Substance: METHOTREXATE
  6. ARAVA [Concomitant]
     Active Substance: LEFLUNOMIDE

REACTIONS (3)
  - White blood cell count decreased [Unknown]
  - Off label use [Unknown]
  - C-reactive protein increased [Unknown]
